FAERS Safety Report 5526728-8 (Version None)
Quarter: 2007Q4

REPORT INFORMATION
  Report Type: 
  Country: None (occurrence: None)
  Receive Date: 20071120
  Receipt Date: 20070512
  Transmission Date: 20080405
  Serious: Yes (Other)
  Sender: FDA-Public Use
  Company Number: 2007038902

PATIENT
  Age: 65 Year
  Sex: Male
  Weight: 104.5 kg

DRUGS (5)
  1. TIKOSYN [Suspect]
     Indication: ARRHYTHMIA
     Dosage: 0.5 MG (0.25 MG,BID)
     Dates: start: 20070501
  2. COREG [Concomitant]
  3. DIGOXIN [Concomitant]
  4. COZAAR [Concomitant]
  5. COUMADIN [Concomitant]

REACTIONS (5)
  - ARRHYTHMIA [None]
  - DIZZINESS [None]
  - NAUSEA [None]
  - OVERDOSE [None]
  - VOMITING [None]
